FAERS Safety Report 17570258 (Version 1)
Quarter: 2020Q1

REPORT INFORMATION
  Report Type: Spontaneous
  Country: NL (occurrence: NL)
  Receive Date: 20200323
  Receipt Date: 20200323
  Transmission Date: 20200409
  Serious: Yes (Hospitalization)
  Sender: FDA-Public Use
  Company Number: NL-TEVA-2020-NL-1208996

PATIENT
  Age: 72 Year
  Sex: Male
  Weight: 67 kg

DRUGS (3)
  1. IBERSETAN/HCT 150/12,5 MG [Concomitant]
     Dosage: 1 DOSAGE FORMS DAILY; 1 X PER DAY
  2. DUTASTERIDE/TAMSULOSINE [Suspect]
     Active Substance: DUTASTERIDE\TAMSULOSIN
     Indication: PROSTATOMEGALY
     Dosage: 1 DOSAGE FORMS DAILY; 1 X PER DAY, 1 DF
     Route: 065
     Dates: start: 20191112, end: 20200305
  3. ACETYSAL CARDIO [Concomitant]
     Dosage: 90 MILLIGRAM DAILY; 90MG 1X P D

REACTIONS (4)
  - Myocardial infarction [Recovering/Resolving]
  - Fatigue [Unknown]
  - Dizziness [Unknown]
  - Palpitations [Unknown]

NARRATIVE: CASE EVENT DATE: 20191229
